FAERS Safety Report 16512749 (Version 3)
Quarter: 2019Q4

REPORT INFORMATION
  Report Type: Spontaneous
  Country: US (occurrence: US)
  Receive Date: 20190702
  Receipt Date: 20191004
  Transmission Date: 20200122
  Serious: Yes (Other)
  Sender: FDA-Public Use
  Company Number: US-SA-2019SA178388

PATIENT
  Sex: Male

DRUGS (23)
  1. PREDNISONE. [Concomitant]
     Active Substance: PREDNISONE
  2. THEOPHYLLINE [Concomitant]
     Active Substance: THEOPHYLLINE ANHYDROUS
  3. GLIMEPIRIDE. [Concomitant]
     Active Substance: GLIMEPIRIDE
  4. TIZANIDINE [TIZANIDINE HYDROCHLORIDE] [Concomitant]
     Active Substance: TIZANIDINE HYDROCHLORIDE
  5. DUPIXENT [Suspect]
     Active Substance: DUPILUMAB
     Indication: PRODUCT USED FOR UNKNOWN INDICATION
     Dosage: 200 MG, QOW
     Route: 058
     Dates: start: 201905
  6. AZELASTINE [AZELASTINE HYDROCHLORIDE] [Concomitant]
  7. INCRUSE ELLIPTA [Concomitant]
     Active Substance: UMECLIDINIUM BROMIDE
  8. IMIPRAMINE [IMIPRAMINE HYDROCHLORIDE] [Concomitant]
  9. COMBIVENT RESPIMAT [Concomitant]
     Active Substance: ALBUTEROL SULFATE\IPRATROPIUM BROMIDE
  10. CALCIUM CITRATE [Concomitant]
     Active Substance: CALCIUM CITRATE
  11. FERROUS SULFATE. [Concomitant]
     Active Substance: FERROUS SULFATE
  12. ZOLPIDEM [Concomitant]
     Active Substance: ZOLPIDEM TARTRATE
  13. ADVAIR UNSPEC [Concomitant]
  14. FLUTICASONE. [Concomitant]
     Active Substance: FLUTICASONE
  15. IPRATROPIUM [Concomitant]
     Active Substance: IPRATROPIUM
  16. PRIMIDONE. [Concomitant]
     Active Substance: PRIMIDONE
  17. PSYLLIUM FIBRE [Concomitant]
  18. ULORIC [Concomitant]
     Active Substance: FEBUXOSTAT
  19. DOXYCYCLINE. [Concomitant]
     Active Substance: DOXYCYCLINE
  20. METFORMIN HYDROCHLORIDE. [Concomitant]
     Active Substance: METFORMIN HYDROCHLORIDE
  21. METHOCARBAMOL. [Concomitant]
     Active Substance: METHOCARBAMOL
  22. NITROGLYCERIN. [Concomitant]
     Active Substance: NITROGLYCERIN
  23. GABAPENTIN. [Concomitant]
     Active Substance: GABAPENTIN

REACTIONS (7)
  - Cardiac failure congestive [Unknown]
  - Asthenia [Unknown]
  - Injection site bruising [Unknown]
  - Cough [Unknown]
  - Dysphonia [Unknown]
  - Dyspnoea [Unknown]
  - Sleep apnoea syndrome [Unknown]

NARRATIVE: CASE EVENT DATE: 2019
